FAERS Safety Report 9907630 (Version 2)
Quarter: 2014Q1

REPORT INFORMATION
  Report Type: Spontaneous
  Country: US (occurrence: US)
  Receive Date: 20140219
  Receipt Date: 20140305
  Transmission Date: 20141002
  Serious: Yes (Other)
  Sender: FDA-Public Use
  Company Number: US-BEH-2014040573

PATIENT
  Sex: Male
  Weight: 96 kg

DRUGS (1)
  1. HIZENTRA [Suspect]
     Indication: HYPOGAMMAGLOBULINAEMIA

REACTIONS (2)
  - Renal failure [Unknown]
  - Blood creatinine increased [Unknown]
